FAERS Safety Report 8310223-7 (Version None)
Quarter: 2012Q2

REPORT INFORMATION
  Report Type: 
  Country: None (occurrence: None)
  Receive Date: 20120425
  Receipt Date: 20120413
  Transmission Date: 20120825
  Serious: Yes (Other)
  Sender: FDA-Public Use
  Company Number: US-SANOFI-AVENTIS-2012SA026176

PATIENT
  Age: 85 Year
  Sex: Male

DRUGS (2)
  1. ELIGARD [Suspect]
     Indication: PROSTATE CANCER
     Dates: start: 20111019, end: 20111019
  2. ELIGARD [Suspect]
     Dates: start: 20120404, end: 20120404

REACTIONS (1)
  - PROSTATIC SPECIFIC ANTIGEN INCREASED [None]
